FAERS Safety Report 16859189 (Version 3)
Quarter: 2020Q1

REPORT INFORMATION
  Report Type: Spontaneous
  Country: IT (occurrence: IT)
  Receive Date: 20190926
  Receipt Date: 20200331
  Transmission Date: 20200409
  Serious: Yes (Hospitalization)
  Sender: FDA-Public Use
  Company Number: IT-TEVA-2019-IT-1110386

PATIENT
  Age: 76 Year
  Sex: Female

DRUGS (6)
  1. EUTIROX 50 MICROGRAMMI COMPRESSE [Concomitant]
     Active Substance: LEVOTHYROXINE SODIUM
     Indication: HYPOPITUITARISM
     Dosage: 50MG
     Route: 048
     Dates: start: 20130412
  2. PARACETAMOLO [Concomitant]
     Active Substance: ACETAMINOPHEN
     Indication: BACK PAIN
     Dosage: 1000MG
     Route: 048
     Dates: start: 20190719, end: 20190719
  3. COUMADIN [Interacting]
     Active Substance: WARFARIN SODIUM
     Indication: ATRIAL FIBRILLATION
     Dosage: 1 DOSAGE FORM/ DAY/ 6 YEARS
     Route: 048
     Dates: start: 20130412, end: 20190722
  4. IBUPROFEN LYSINE. [Suspect]
     Active Substance: IBUPROFEN LYSINE
     Indication: BACK PAIN
     Dosage: 1 DOSAGE FORM/ DAY/ 3 DAYS
     Route: 048
     Dates: start: 20190719, end: 20190722
  5. CORTONE ACETATO A 25MG COMPRESSE 20 COMPRESSE [Concomitant]
     Dosage: 25MG
     Route: 048
     Dates: start: 20130412
  6. RAMIPRIL ACTAVIS [Concomitant]
     Active Substance: RAMIPRIL
     Indication: HYPERTENSIVE HEART DISEASE
     Dosage: 5 MG
     Route: 048
     Dates: start: 20130412

REACTIONS (2)
  - Drug interaction [Recovered/Resolved]
  - International normalised ratio increased [Recovered/Resolved]

NARRATIVE: CASE EVENT DATE: 20190719
